FAERS Safety Report 18513797 (Version 1)
Quarter: 2020Q4

REPORT INFORMATION
  Report Type: Spontaneous
  Country: NL (occurrence: NL)
  Receive Date: 20201118
  Receipt Date: 20201118
  Transmission Date: 20210114
  Serious: Yes (Other)
  Sender: FDA-Public Use
  Company Number: NL-SUN PHARMACEUTICAL INDUSTRIES LTD-2020RR-268035

PATIENT
  Sex: Female

DRUGS (7)
  1. DOXYCYCLINE DISPERTABLET 100MG [Concomitant]
     Active Substance: DOXYCYCLINE
     Indication: PRODUCT USED FOR UNKNOWN INDICATION
     Dosage: TABLET, 100 MG (MILLIGRAM) ()
     Route: 065
  2. TEMAZEPAM CAPSULE 20MG [Concomitant]
     Active Substance: TEMAZEPAM
     Indication: PRODUCT USED FOR UNKNOWN INDICATION
     Dosage: CAPSULE, 20 MG (MILLIGRAM) ()
     Route: 065
  3. ZOLMITRIPTAN TABLET OMHULD 2,5MG [Interacting]
     Active Substance: ZOLMITRIPTAN
     Indication: MIGRAINE
     Dosage: PMH2T ()
     Route: 065
     Dates: start: 20201023, end: 20201023
  4. SERTRALINE [Suspect]
     Active Substance: SERTRALINE HYDROCHLORIDE
     Indication: DEPRESSION
     Dosage: TABLET, 100 MG (MILLIGRAM) ()
     Route: 065
  5. OMEPRAZOL TABLET MSR 40MG [Concomitant]
     Active Substance: OMEPRAZOLE
     Indication: PRODUCT USED FOR UNKNOWN INDICATION
     Dosage: MAAGSAPRESISTENTE TABLET, 40 MG (MILLIGRAM) ()
     Route: 065
  6. LEVOCETIRIZINE TABLET FO 5MG [Concomitant]
     Active Substance: LEVOCETIRIZINE
     Indication: PRODUCT USED FOR UNKNOWN INDICATION
     Dosage: FILMOMHULDE TABLET, 5 MG (MILLIGRAM) ()
     Route: 065
  7. DESLORATADINE TABLET 5MG [Concomitant]
     Active Substance: DESLORATADINE
     Indication: PRODUCT USED FOR UNKNOWN INDICATION
     Dosage: TABLET, 5 MG (MILLIGRAM) ()
     Route: 065

REACTIONS (2)
  - Serotonin syndrome [Recovering/Resolving]
  - Drug interaction [Recovering/Resolving]
